FAERS Safety Report 4948062-7 (Version None)
Quarter: 2006Q1

REPORT INFORMATION
  Report Type: 
  Country: None (occurrence: None)
  Receive Date: 20060320
  Receipt Date: 20060308
  Transmission Date: 20060701
  Serious: Yes (Hospitalization, Other)
  Sender: FDA-Public Use
  Company Number: JP-BRISTOL-MYERS SQUIBB COMPANY-13316286

PATIENT
  Age: 89 Year
  Sex: Male

DRUGS (13)
  1. GATIFLOXACIN [Suspect]
     Indication: BRONCHITIS
     Route: 048
     Dates: start: 20060216, end: 20060222
  2. MUCOTRON [Concomitant]
  3. LEFTOSE [Concomitant]
  4. THEO-DUR [Concomitant]
  5. ISOSORBIDE DINITRATE [Concomitant]
  6. PANTOSIN [Concomitant]
  7. MAGNESIUM OXIDE [Concomitant]
  8. ADENOSINE TRIPHOSPHATE DISODIUM [Concomitant]
  9. NICORANDIL [Concomitant]
  10. TICLOPIDINE HCL [Concomitant]
  11. ASPIRIN + DI-ALMINATE [Concomitant]
  12. ZANTAC [Concomitant]
  13. FRANDOL TAPE S [Concomitant]

REACTIONS (1)
  - HYPOGLYCAEMIA [None]
